FAERS Safety Report 20930370 (Version 4)
Quarter: 2023Q1

REPORT INFORMATION
  Report Type: Spontaneous
  Country: US (occurrence: US)
  Receive Date: 20220608
  Receipt Date: 20230212
  Transmission Date: 20230417
  Serious: No
  Sender: FDA-Public Use
  Company Number: US-LUPIN PHARMACEUTICALS INC.-2022-08077

PATIENT

DRUGS (1)
  1. ALBUTEROL SULFATE [Suspect]
     Active Substance: ALBUTEROL SULFATE
     Indication: Asthma
     Dosage: UNK, PRN (INHALE 2 PUFFS QID PRN)
     Dates: start: 20220519

REACTIONS (4)
  - Blood pressure increased [Unknown]
  - Product taste abnormal [Unknown]
  - Product quality issue [Unknown]
  - Product substitution issue [Unknown]
